FAERS Safety Report 5995183-6 (Version None)
Quarter: 2008Q4

REPORT INFORMATION
  Report Type: 
  Country: None (occurrence: None)
  Receive Date: 20081212
  Receipt Date: 20080923
  Transmission Date: 20090506
  Serious: No
  Sender: FDA-Public Use
  Company Number: US-ABBOTT-08P-163-0478038-00

PATIENT
  Sex: Male
  Weight: 90.8 kg

DRUGS (1)
  1. HUMIRA [Suspect]
     Indication: PSORIATIC ARTHROPATHY
     Route: 058
     Dates: start: 20060101

REACTIONS (5)
  - BRONCHITIS [None]
  - DYSPNOEA [None]
  - IMPAIRED HEALING [None]
  - NASOPHARYNGITIS [None]
  - PNEUMONIA PRIMARY ATYPICAL [None]
